FAERS Safety Report 11876947 (Version 3)
Quarter: 2016Q1

REPORT INFORMATION
  Report Type: Report from Study
  Country: DE (occurrence: DE)
  Receive Date: 20151229
  Receipt Date: 20160106
  Transmission Date: 20160526
  Serious: Yes (Hospitalization)
  Sender: FDA-Public Use
  Company Number: DE-ABBVIE-15K-062-1525756-00

PATIENT
  Sex: Female
  Weight: 51 kg

DRUGS (6)
  1. CLONT [Concomitant]
     Indication: PRODUCT USED FOR UNKNOWN INDICATION
     Dosage: 3 TIMES
     Dates: start: 20150824, end: 20150923
  2. HUMIRA [Suspect]
     Active Substance: ADALIMUMAB
     Indication: CROHN^S DISEASE
     Route: 058
     Dates: start: 20150521, end: 201508
  3. HUMIRA [Suspect]
     Active Substance: ADALIMUMAB
     Route: 058
     Dates: start: 201508
  4. PANTOPRAZOL [Concomitant]
     Active Substance: PANTOPRAZOLE SODIUM
     Indication: PRODUCT USED FOR UNKNOWN INDICATION
  5. BUDESONID [Concomitant]
     Active Substance: BUDESONIDE
     Indication: CROHN^S DISEASE
  6. TRAMAL [Concomitant]
     Active Substance: TRAMADOL
     Indication: PRODUCT USED FOR UNKNOWN INDICATION

REACTIONS (5)
  - Fistula [Unknown]
  - Abscess [Unknown]
  - Intestinal anastomosis complication [Unknown]
  - Abdominal lymphadenopathy [Unknown]
  - Anal fissure [Unknown]

NARRATIVE: CASE EVENT DATE: 2015
